FAERS Safety Report 5785192-4 (Version None)
Quarter: 2008Q2

REPORT INFORMATION
  Report Type: 
  Country: None (occurrence: None)
  Receive Date: 20080620
  Receipt Date: 20080620
  Transmission Date: 20081010
  Serious: Yes (Hospitalization, Other)
  Sender: FDA-Public Use
  Company Number: None

PATIENT
  Sex: Female
  Weight: 45.9 kg

DRUGS (1)
  1. LEVETIRACETAM [Suspect]
     Indication: CONVULSION
     Dosage: 250 MG BID PO
     Route: 048
     Dates: start: 20080414, end: 20080420

REACTIONS (8)
  - ABDOMINAL PAIN [None]
  - ANURIA [None]
  - DIARRHOEA [None]
  - HYDRONEPHROSIS [None]
  - NAUSEA [None]
  - NEPHRITIS INTERSTITIAL [None]
  - SCAR [None]
  - URETERIC OBSTRUCTION [None]
